FAERS Safety Report 8084885-6 (Version None)
Quarter: 2012Q1

REPORT INFORMATION
  Report Type: 
  Country: None (occurrence: None)
  Receive Date: 20120128
  Receipt Date: 20110316
  Transmission Date: 20120608
  Serious: No
  Sender: FDA-Public Use
  Company Number: US-ABBOTT-11P-163-0712884-00

PATIENT
  Age: 41 Year
  Sex: Female
  Weight: 56.75 kg

DRUGS (8)
  1. OMEPRAZOLE [Concomitant]
     Indication: GASTROOESOPHAGEAL REFLUX DISEASE
  2. XANAX [Concomitant]
     Indication: ANXIETY
  3. PENTASA [Concomitant]
     Indication: CROHN'S DISEASE
  4. VITAMIN B-12 [Concomitant]
     Indication: PRODUCT USED FOR UNKNOWN INDICATION
     Route: 050
  5. HUMIRA [Suspect]
     Indication: CROHN'S DISEASE
     Dates: start: 20101203, end: 20110114
  6. FIORICET [Concomitant]
     Indication: MIGRAINE
  7. FOLIC ACID [Concomitant]
     Indication: PRODUCT USED FOR UNKNOWN INDICATION
  8. TOPROL-XL [Concomitant]
     Indication: HYPERTENSION

REACTIONS (13)
  - FATIGUE [None]
  - PHARYNGEAL LEUKOPLAKIA [None]
  - HEADACHE [None]
  - EAR PAIN [None]
  - TONSILLAR INFLAMMATION [None]
  - OROPHARYNGEAL PAIN [None]
  - HOT FLUSH [None]
  - MALAISE [None]
  - TONSILLITIS [None]
  - NIGHT SWEATS [None]
  - DYSPHAGIA [None]
  - PYREXIA [None]
  - STREPTOCOCCUS TEST POSITIVE [None]
